FAERS Safety Report 4380955-4 (Version None)
Quarter: 2004Q2

REPORT INFORMATION
  Report Type: 
  Country: None (occurrence: None)
  Receive Date: 20040618
  Receipt Date: 20040607
  Transmission Date: 20050107
  Serious: Yes (Disabling)
  Sender: FDA-Public Use
  Company Number: US-MERCK-0406USA00594

PATIENT
  Age: 63 Year
  Sex: Female

DRUGS (2)
  1. ASPIRIN [Concomitant]
     Route: 065
  2. ZOCOR [Suspect]
     Indication: BLOOD CHOLESTEROL INCREASED
     Route: 048
     Dates: start: 20040501

REACTIONS (1)
  - OEDEMA PERIPHERAL [None]
